FAERS Safety Report 24326446 (Version 2)
Quarter: 2025Q2

REPORT INFORMATION
  Report Type: Spontaneous
  Country: JP (occurrence: JP)
  Receive Date: 20240917
  Receipt Date: 20250605
  Transmission Date: 20250716
  Serious: Yes (Hospitalization, Other)
  Sender: ROCHE
  Company Number: JP-CHUGAI-2024031699AA

PATIENT
  Age: 76 Year
  Sex: Male
  Weight: 62.3 kg

DRUGS (12)
  1. TECENTRIQ [Suspect]
     Active Substance: ATEZOLIZUMAB
     Indication: Hepatocellular carcinoma
     Route: 042
     Dates: start: 20240425, end: 20240516
  2. AVASTIN [Suspect]
     Active Substance: BEVACIZUMAB
     Indication: Hepatocellular carcinoma
     Route: 042
     Dates: start: 20240425, end: 20240516
  3. ENTRESTO [Concomitant]
     Active Substance: SACUBITRIL\VALSARTAN
     Route: 050
  4. ESOMEPRAZOLE MAGNESIUM [Concomitant]
     Active Substance: ESOMEPRAZOLE MAGNESIUM
     Route: 050
  5. RUPAFIN [Concomitant]
     Active Substance: RUPATADINE FUMARATE
     Route: 050
  6. LIVACT [ISOLEUCINE;LEUCINE;VALINE] [Concomitant]
     Route: 050
  7. AMLODIPINE BESYLATE [Concomitant]
     Active Substance: AMLODIPINE BESYLATE
     Route: 050
  8. TOPIROXOSTAT [Concomitant]
     Active Substance: TOPIROXOSTAT
     Route: 050
  9. URSODIOL [Concomitant]
     Active Substance: URSODIOL
     Route: 050
  10. POTASSIUM ASPARTATE [Concomitant]
     Active Substance: POTASSIUM ASPARTATE
     Route: 050
  11. DOXAZOSIN [Concomitant]
     Active Substance: DOXAZOSIN MESYLATE
     Route: 050
  12. SPIRONOLACTONE [Concomitant]
     Active Substance: SPIRONOLACTONE
     Route: 050

REACTIONS (7)
  - Subarachnoid haemorrhage [Unknown]
  - Subdural haematoma [Unknown]
  - Fall [Unknown]
  - Type 1 diabetes mellitus [Not Recovered/Not Resolved]
  - Hyponatraemia [Unknown]
  - Adrenal insufficiency [Unknown]
  - Dizziness [Unknown]

NARRATIVE: CASE EVENT DATE: 20240519
